FAERS Safety Report 24366675 (Version 1)
Quarter: 2024Q3

REPORT INFORMATION
  Report Type: Spontaneous
  Country: US (occurrence: None)
  Receive Date: 20240925
  Receipt Date: 20240925
  Transmission Date: 20241017
  Serious: Yes (Death)
  Sender: Public
  Company Number: None

PATIENT
  Age: 57 Year
  Sex: Female
  Weight: 81.4 kg

DRUGS (18)
  1. TACROLIMUS [Suspect]
     Active Substance: TACROLIMUS
     Indication: Prophylaxis against transplant rejection
     Dosage: FREQUENCY : TWICE A DAY;?
     Route: 048
     Dates: start: 20231204, end: 20240920
  2. TACROLIMUS [Suspect]
     Active Substance: TACROLIMUS
     Indication: Prophylaxis against transplant rejection
     Dosage: FREQUENCY : TWICE A DAY;?
     Route: 048
     Dates: start: 20231204, end: 20240920
  3. ALBUTEROL [Concomitant]
     Active Substance: ALBUTEROL
     Dates: start: 20231204, end: 20240920
  4. Atovaquone 750 mg/5 ml suspension [Concomitant]
     Dates: start: 20231204, end: 20240920
  5. Budesonide 3 mg DR capsules [Concomitant]
     Dates: start: 20231220, end: 20240920
  6. Carvedilol 3.125 mg tablets [Concomitant]
     Dates: start: 20240716, end: 20240920
  7. Enoxaparin 60 mg/0.6 ml syringe [Concomitant]
     Dates: start: 20240716, end: 20240920
  8. LIDOCAINE [Concomitant]
     Active Substance: LIDOCAINE
     Dates: start: 20240309, end: 20240920
  9. MG Plus Protein 133 mg Tablets [Concomitant]
     Dates: start: 20231204, end: 20240920
  10. Mycophenolate 500 mg Tablets [Concomitant]
     Dates: start: 20231204, end: 20240920
  11. Oxybutynin 5 mg Tablets [Concomitant]
     Dates: start: 20231204, end: 20240920
  12. PANTOPRAZOLE SODIUM [Concomitant]
     Active Substance: PANTOPRAZOLE SODIUM
     Dates: start: 20231204, end: 20240920
  13. Posaconazole 100 mg DR Tablets [Concomitant]
     Dates: start: 20230612, end: 20240920
  14. Scopalamine Transdermal Patches [Concomitant]
     Dates: start: 20230611, end: 20240920
  15. TAMSULOSIN [Concomitant]
     Active Substance: TAMSULOSIN
     Dates: start: 20231211, end: 20240920
  16. Ursodiol 300 mg capsules [Concomitant]
     Dates: start: 20231204, end: 20240920
  17. Vitamin B-12 1000 mcg Tablet [Concomitant]
     Dates: start: 20240716, end: 20240920
  18. VORICONAZOLE [Concomitant]
     Active Substance: VORICONAZOLE
     Dates: start: 20231204, end: 20240920

REACTIONS (1)
  - Infection [None]

NARRATIVE: CASE EVENT DATE: 20240920
